FAERS Safety Report 4280846-3 (Version None)
Quarter: 2004Q1

REPORT INFORMATION
  Report Type: 
  Country: None (occurrence: None)
  Receive Date: 20040127
  Receipt Date: 20040115
  Transmission Date: 20041129
  Serious: Yes (Other)
  Sender: FDA-Public Use
  Company Number: 2004-00174

PATIENT
  Age: 59 Year
  Sex: Female
  Weight: 54.4 kg

DRUGS (2)
  1. FIORICET [Suspect]
     Indication: HEADACHE
     Dosage: 4 TABLET, DAILY, ORAL
     Route: 048
     Dates: start: 19631101, end: 20031114
  2. EFFEXOR [Concomitant]

REACTIONS (6)
  - CONVULSION [None]
  - DECREASED ACTIVITY [None]
  - DEPRESSION [None]
  - DRUG WITHDRAWAL SYNDROME [None]
  - LETHARGY [None]
  - SELF-MEDICATION [None]
